FAERS Safety Report 6615050-4 (Version None)
Quarter: 2010Q1

REPORT INFORMATION
  Report Type: 
  Country: None (occurrence: None)
  Receive Date: 20100305
  Receipt Date: 20100224
  Transmission Date: 20100710
  Serious: Yes (Hospitalization, Other)
  Sender: FDA-Public Use
  Company Number: AU-ASTRAZENECA-2010SE08087

PATIENT
  Age: 0 Day
  Sex: Female
  Weight: 3.5 kg

DRUGS (7)
  1. SEROQUEL [Suspect]
     Indication: PSYCHOTHERAPY
     Dosage: 400-1200 MG PER DAY MATERNAL TRANSFER DURING PREGNANCY
     Route: 064
  2. ZOLOFT [Suspect]
     Indication: ANTIDEPRESSANT THERAPY
     Dosage: 50-100 MG DAILY
     Route: 064
  3. METFORMIN HCL [Concomitant]
     Indication: TYPE 2 DIABETES MELLITUS
     Route: 064
  4. BLACKMORES PREGNANCY AND BREASTFEEDING FORMULA [Concomitant]
     Indication: SUPPLEMENTATION THERAPY
     Dosage: 1-2 TABLETS DAILY
     Route: 064
  5. FEFOL [Concomitant]
     Indication: MINERAL SUPPLEMENTATION
     Dosage: ONE TABLET DAILY
     Route: 064
  6. VITAMIN C [Concomitant]
     Indication: VITAMIN SUPPLEMENTATION
     Dosage: ONE TABLET DAILY
     Route: 064
  7. ACETAMINOPHEN W/ CODEINE [Concomitant]
     Indication: PROLACTINOMA
     Dosage: 1-2 TABLET AS REQUIRED
     Route: 064

REACTIONS (7)
  - AGITATION [None]
  - CRYING [None]
  - DRUG WITHDRAWAL SYNDROME NEONATAL [None]
  - FEEDING DISORDER NEONATAL [None]
  - INSOMNIA [None]
  - IRRITABILITY [None]
  - STAPHYLOCOCCAL INFECTION [None]
